FAERS Safety Report 23914282 (Version 1)
Quarter: 2024Q2

REPORT INFORMATION
  Report Type: Spontaneous
  Country: TR (occurrence: TR)
  Receive Date: 20240529
  Receipt Date: 20240529
  Transmission Date: 20240716
  Serious: Yes (Death, Other)
  Sender: FDA-Public Use
  Company Number: TR-PFIZER INC-PV202400069760

PATIENT
  Age: 31 Year
  Sex: Male

DRUGS (1)
  1. LORLATINIB [Suspect]
     Active Substance: LORLATINIB
     Indication: Lung neoplasm malignant
     Dosage: 100 MG

REACTIONS (6)
  - Pulmonary embolism [Fatal]
  - Hyperlipidaemia [Unknown]
  - Hypertriglyceridaemia [Unknown]
  - Hallucination [Unknown]
  - Sleep disorder [Unknown]
  - Fatigue [Unknown]
